FAERS Safety Report 18571963 (Version 2)
Quarter: 2020Q4

REPORT INFORMATION
  Report Type: Spontaneous
  Country: CZ (occurrence: CZ)
  Receive Date: 20201203
  Receipt Date: 20201209
  Transmission Date: 20210114
  Serious: Yes (Death, Other)
  Sender: FDA-Public Use
  Company Number: CZ-AMGEN-CZESP2020191983

PATIENT
  Sex: Male

DRUGS (7)
  1. FIRMAGON [Suspect]
     Active Substance: DEGARELIX ACETATE
     Indication: PROSTATE CANCER
     Route: 065
     Dates: start: 20141014
  2. XGEVA [Suspect]
     Active Substance: DENOSUMAB
     Indication: PROSTATE CANCER
     Dosage: UNK
     Route: 065
     Dates: start: 20161102
  3. PREDNISONE. [Suspect]
     Active Substance: PREDNISONE
     Indication: PROSTATE CANCER METASTATIC
     Route: 065
     Dates: start: 20161005
  4. ZYTIGA [Suspect]
     Active Substance: ABIRATERONE ACETATE
     Indication: PROSTATE CANCER METASTATIC
     Dosage: 1000 MILLIGRAM, QD
     Route: 048
     Dates: start: 20161005, end: 20200311
  5. CALCICHEW [Concomitant]
     Active Substance: CALCIUM CARBONATE
     Route: 065
  6. PRENESSA [Concomitant]
     Active Substance: PERINDOPRIL
     Dosage: 1/2
     Route: 065
  7. ANOPYRIN [Concomitant]
     Active Substance: ASPIRIN
     Dosage: 1/2
     Route: 065

REACTIONS (1)
  - Prostate cancer metastatic [Unknown]
